FAERS Safety Report 17550618 (Version 2)
Quarter: 2022Q1

REPORT INFORMATION
  Report Type: Spontaneous
  Country: IT (occurrence: IT)
  Receive Date: 20200317
  Receipt Date: 20220331
  Transmission Date: 20220424
  Serious: Yes (Death, Hospitalization)
  Sender: FDA-Public Use
  Company Number: IT-TEVA-2020-IT-1203575

PATIENT
  Age: 56 Year
  Sex: Male

DRUGS (8)
  1. PREDNISONE [Suspect]
     Active Substance: PREDNISONE
     Indication: Chronic inflammatory demyelinating polyradiculoneuropathy
     Route: 048
  2. RITUXIMAB [Suspect]
     Active Substance: RITUXIMAB
     Indication: Chronic inflammatory demyelinating polyradiculoneuropathy
     Dosage: FIRST DOSE AND THE MAN RECEIVED SECOND DOSE TWO WEEKS LATER
     Route: 065
     Dates: start: 201806
  3. RANITIDINE [Concomitant]
     Active Substance: RANITIDINE
     Route: 048
  4. LEVOTHYROXINE [Concomitant]
     Active Substance: LEVOTHYROXINE
     Route: 048
  5. CANDESARTAN [Concomitant]
     Active Substance: CANDESARTAN
     Route: 048
  6. ALLOPURINOL [Concomitant]
     Active Substance: ALLOPURINOL
     Route: 048
  7. NALOXONE HYDROCHLORIDE\OXYCODONE HYDROCHLORIDE [Concomitant]
     Active Substance: NALOXONE HYDROCHLORIDE\OXYCODONE HYDROCHLORIDE
     Dosage: 10/5MG TWICE DAILY
     Route: 048
  8. ALENDRONIC ACID [Concomitant]
     Active Substance: ALENDRONIC ACID
     Route: 048

REACTIONS (6)
  - Hepatitis B reactivation [Fatal]
  - Cholecystitis [Fatal]
  - Hepatic encephalopathy [Fatal]
  - Hepatic failure [Fatal]
  - Metabolic acidosis [Fatal]
  - Multiple organ dysfunction syndrome [Fatal]
